FAERS Safety Report 24272207 (Version 1)
Quarter: 2024Q3

REPORT INFORMATION
  Report Type: Spontaneous
  Country: CN (occurrence: CN)
  Receive Date: 20240902
  Receipt Date: 20240902
  Transmission Date: 20241017
  Serious: Yes (Hospitalization, Other)
  Sender: SANDOZ
  Company Number: CN-SANDOZ-SDZ2024CN076454

PATIENT
  Age: 60 Year
  Sex: Female
  Weight: 55 kg

DRUGS (1)
  1. ACLASTA [Suspect]
     Active Substance: ZOLEDRONIC ACID
     Indication: Osteoporosis postmenopausal
     Dosage: 100 ML, QD
     Route: 041
     Dates: start: 20240824, end: 20240824

REACTIONS (1)
  - Hyperpyrexia [Recovering/Resolving]

NARRATIVE: CASE EVENT DATE: 20240824
